FAERS Safety Report 5476241-1 (Version None)
Quarter: 2007Q4

REPORT INFORMATION
  Report Type: 
  Country: None (occurrence: None)
  Receive Date: 20071003
  Receipt Date: 20071001
  Transmission Date: 20080405
  Serious: Yes (Other)
  Sender: FDA-Public Use
  Company Number: US-ROXANE LABORATORIES, INC-2007-BP-21945RO

PATIENT
  Age: 54 Year
  Sex: Female

DRUGS (4)
  1. TAMOXIFEN CITRATE [Suspect]
     Indication: BREAST CANCER
  2. ARIPIPRAZOLE [Suspect]
     Indication: SCHIZOAFFECTIVE DISORDER
  3. OLANZAPINE [Suspect]
     Indication: SCHIZOAFFECTIVE DISORDER
  4. QUETIAPINE FUMARATE [Concomitant]
     Indication: SCHIZOAFFECTIVE DISORDER

REACTIONS (3)
  - DRUG INTERACTION [None]
  - TARDIVE DYSKINESIA [None]
  - WEIGHT INCREASED [None]
